FAERS Safety Report 22526939 (Version 1)
Quarter: 2023Q2

REPORT INFORMATION
  Report Type: Spontaneous
  Country: US (occurrence: US)
  Receive Date: 20230606
  Receipt Date: 20230606
  Transmission Date: 20230721
  Serious: No
  Sender: FDA-Public Use
  Company Number: US-MAYNE PHARMA-2022MYN001304

PATIENT
  Sex: Male

DRUGS (1)
  1. LEXETTE [Suspect]
     Active Substance: HALOBETASOL PROPIONATE
     Indication: Dermatitis atopic
     Route: 061

REACTIONS (1)
  - Drug ineffective [Unknown]
